FAERS Safety Report 7048616-0 (Version None)
Quarter: 2010Q4

REPORT INFORMATION
  Report Type: 
  Country: None (occurrence: None)
  Receive Date: 20101018
  Receipt Date: 20101012
  Transmission Date: 20110411
  Serious: Yes (Hospitalization)
  Sender: FDA-Public Use
  Company Number: IT-BAYER-201042219GPV

PATIENT
  Age: 36 Year
  Sex: Male

DRUGS (1)
  1. ASPIRIN [Suspect]
     Indication: ANALGESIC THERAPY
     Dosage: TOTAL DAILY DOSE: 500 MG
     Route: 048
     Dates: start: 20100921, end: 20100921

REACTIONS (2)
  - GASTRODUODENITIS [None]
  - SHOCK HAEMORRHAGIC [None]
